FAERS Safety Report 5865802-3 (Version None)
Quarter: 2008Q3

REPORT INFORMATION
  Report Type: 
  Country: None (occurrence: None)
  Receive Date: 20080829
  Receipt Date: 20080826
  Transmission Date: 20090109
  Serious: Yes (Other)
  Sender: FDA-Public Use
  Company Number: US-ASTRAZENECA-2008UW17524

PATIENT
  Age: 66 Year
  Sex: Female

DRUGS (3)
  1. ARIMIDEX [Suspect]
     Indication: BREAST CANCER
     Route: 048
     Dates: start: 20060101
  2. FOSAMAX [Concomitant]
  3. LEVOXYL [Concomitant]

REACTIONS (3)
  - ARTHRITIS [None]
  - HIP ARTHROPLASTY [None]
  - SHOULDER ARTHROPLASTY [None]
